FAERS Safety Report 5288983-1 (Version None)
Quarter: 2007Q1

REPORT INFORMATION
  Report Type: 
  Country: None (occurrence: None)
  Receive Date: 20070118
  Receipt Date: 20061031
  Transmission Date: 20070707
  Serious: Yes (Other)
  Sender: FDA-Public Use
  Company Number: HQWYE128201NOV06

PATIENT
  Age: 67 Year
  Sex: Female
  Weight: 65.83 kg

DRUGS (2)
  1. ADVIL PM [Suspect]
     Indication: INSOMNIA
     Dosage: 1 CAPLET X 1, ORAL
     Route: 048
     Dates: start: 20061001, end: 20061001
  2. ADVIL PM [Suspect]
     Indication: PAIN
     Dosage: 1 CAPLET X 1, ORAL
     Route: 048
     Dates: start: 20061001, end: 20061001

REACTIONS (3)
  - DRUG EFFECT DECREASED [None]
  - HALLUCINATION [None]
  - NAUSEA [None]
